FAERS Safety Report 5465849-5 (Version None)
Quarter: 2007Q3

REPORT INFORMATION
  Report Type: 
  Country: None (occurrence: None)
  Receive Date: 20070924
  Receipt Date: 20070917
  Transmission Date: 20080115
  Serious: Yes (Other)
  Sender: FDA-Public Use
  Company Number: PHBS2007BR15411

PATIENT
  Age: 38 Year
  Sex: Female
  Weight: 75 kg

DRUGS (1)
  1. LAMISIL [Suspect]
     Indication: ONYCHOMYCOSIS
     Dosage: 500 MG, /IRREGULAR USE
     Route: 048
     Dates: start: 20060101

REACTIONS (3)
  - DISEASE RECURRENCE [None]
  - ONYCHOMYCOSIS [None]
  - PANIC DISORDER [None]
